FAERS Safety Report 7270187-4 (Version None)
Quarter: 2011Q1

REPORT INFORMATION
  Report Type: 
  Country: None (occurrence: None)
  Receive Date: 20110202
  Receipt Date: 20110121
  Transmission Date: 20110831
  Serious: Yes (Other)
  Sender: FDA-Public Use
  Company Number: JP-ELI_LILLY_AND_COMPANY-JP201101006170

PATIENT
  Age: 56 Year
  Sex: Female

DRUGS (10)
  1. CYMBALTA [Suspect]
     Dosage: 60 MG, DAILY (1/D)
     Route: 048
     Dates: start: 20100101, end: 20100101
  2. MIDODRINE HYDROCHLORIDE [Concomitant]
     Dosage: 6 MG, DAILY (1/D)
     Route: 048
  3. FLUNITRAZEPAM [Concomitant]
     Indication: MAJOR DEPRESSION
     Dosage: 1 MG, DAILY (1/D)
     Route: 048
     Dates: start: 20090701, end: 20101001
  4. LEVOTHYROXINE SODIUM [Concomitant]
     Dosage: 50 UG, DAILY (1/D)
     Route: 048
  5. CYMBALTA [Suspect]
     Dosage: 40 MG, DAILY (1/D)
     Route: 048
     Dates: start: 20100101, end: 20100101
  6. OLANZAPINE [Concomitant]
     Indication: MAJOR DEPRESSION
     Dosage: 2.5 MG, DAILY (1/D)
     Route: 048
     Dates: start: 20090701, end: 20101001
  7. CYMBALTA [Suspect]
     Indication: MAJOR DEPRESSION
     Dosage: 20 MG, DAILY (1/D)
     Route: 048
     Dates: start: 20100801
  8. AMEZINIUM METILSULFATE [Concomitant]
     Dosage: 20 MG, DAILY (1/D)
     Route: 048
  9. CYMBALTA [Suspect]
     Dosage: 20 MG, DAILY (1/D)
     Route: 048
     Dates: start: 20100101, end: 20101001
  10. ZOPIDEM [Concomitant]
     Indication: MAJOR DEPRESSION
     Dosage: 10 MG, DAILY (1/D)
     Route: 048
     Dates: start: 20090701, end: 20101001

REACTIONS (3)
  - CONVULSION [None]
  - HYPOTENSION [None]
  - LOSS OF CONSCIOUSNESS [None]
